FAERS Safety Report 11293927 (Version 1)
Quarter: 2015Q3

REPORT INFORMATION
  Report Type: Spontaneous
  Country: US (occurrence: US)
  Receive Date: 20150722
  Receipt Date: 20150722
  Transmission Date: 20151125
  Serious: No
  Sender: FDA-Public Use
  Company Number: US-GLAXOSMITHKLINE-US2015GSK105116

PATIENT
  Sex: Male

DRUGS (2)
  1. VENTOLIN HFA [Suspect]
     Active Substance: ALBUTEROL SULFATE
     Dosage: 2 PUFF(S), QD
     Dates: start: 20150608
  2. VENTOLIN HFA [Suspect]
     Active Substance: ALBUTEROL SULFATE
     Indication: TOTAL LUNG CAPACITY DECREASED
     Dosage: 4 PUFF(S), QD
     Dates: start: 2010

REACTIONS (3)
  - Intentional product use issue [Unknown]
  - Underdose [Unknown]
  - Drug dose omission [Unknown]
